FAERS Safety Report 10591628 (Version 1)
Quarter: 2014Q4

REPORT INFORMATION
  Report Type: Spontaneous
  Country: DE (occurrence: DE)
  Receive Date: 20141118
  Receipt Date: 20141118
  Transmission Date: 20150529
  Serious: Yes (Other)
  Sender: FDA-Public Use
  Company Number: ALCN2014DE006377

PATIENT
  Sex: Female

DRUGS (1)
  1. VIGAMOX [Suspect]
     Active Substance: MOXIFLOXACIN HYDROCHLORIDE
     Indication: CONJUNCTIVITIS
     Dosage: UNK
     Route: 047

REACTIONS (9)
  - Vision blurred [Unknown]
  - Feeling cold [Unknown]
  - Dyspnoea [Unknown]
  - Dry mouth [Unknown]
  - Pharyngeal oedema [Unknown]
  - Urticaria [Recovering/Resolving]
  - Hypersensitivity [Unknown]
  - Diarrhoea [Unknown]
  - Tremor [Unknown]
